FAERS Safety Report 15614269 (Version 1)
Quarter: 2018Q4

REPORT INFORMATION
  Report Type: Spontaneous
  Country: US (occurrence: US)
  Receive Date: 20181113
  Receipt Date: 20181113
  Transmission Date: 20190205
  Serious: Yes (Hospitalization, Other)
  Sender: FDA-Public Use
  Company Number: US-009507513-1811USA003262

PATIENT
  Sex: Male

DRUGS (2)
  1. KEYTRUDA [Suspect]
     Active Substance: PEMBROLIZUMAB
     Indication: LUNG NEOPLASM MALIGNANT
     Dosage: 200MG/EVERY 3 WEEKS
     Route: 042
  2. KEYTRUDA [Suspect]
     Active Substance: PEMBROLIZUMAB
     Indication: METASTASES TO CENTRAL NERVOUS SYSTEM

REACTIONS (9)
  - Memory impairment [Unknown]
  - Abdominal pain upper [Unknown]
  - Abnormal dreams [Unknown]
  - Cholecystectomy [Unknown]
  - Asthenia [Not Recovered/Not Resolved]
  - Confusional state [Unknown]
  - Muscular weakness [Unknown]
  - Product dose omission [Unknown]
  - Procedural pain [Not Recovered/Not Resolved]
